FAERS Safety Report 5078788-9 (Version None)
Quarter: 2006Q3

REPORT INFORMATION
  Report Type: 
  Country: None (occurrence: None)
  Receive Date: 20060809
  Receipt Date: 20060807
  Transmission Date: 20061208
  Serious: Yes (Hospitalization, Other)
  Sender: FDA-Public Use
  Company Number: HQWYE280920JUN06

PATIENT
  Age: 66 Year
  Sex: Female
  Weight: 53.12 kg

DRUGS (7)
  1. TYGACIL [Suspect]
     Indication: CELLULITIS
     Dosage: 100 MG LOADING DOSE THEN 50MG EVERY 12 HOURS, INTRAVENOUS
     Route: 042
     Dates: start: 20060603, end: 20060607
  2. TYGACIL [Suspect]
     Indication: INFECTION
     Dosage: 100 MG LOADING DOSE THEN 50MG EVERY 12 HOURS, INTRAVENOUS
     Route: 042
     Dates: start: 20060603, end: 20060607
  3. TYGACIL [Suspect]
     Indication: PYREXIA
     Dosage: 100 MG LOADING DOSE THEN 50MG EVERY 12 HOURS, INTRAVENOUS
     Route: 042
     Dates: start: 20060603, end: 20060607
  4. PREDNISONE [Concomitant]
  5. WELLBUTRIN [Concomitant]
  6. COZAAR [Concomitant]
  7. FLAGYL [Concomitant]

REACTIONS (4)
  - ALANINE AMINOTRANSFERASE INCREASED [None]
  - ASPARTATE AMINOTRANSFERASE INCREASED [None]
  - BLOOD ALKALINE PHOSPHATASE INCREASED [None]
  - GAMMA-GLUTAMYLTRANSFERASE INCREASED [None]
